FAERS Safety Report 10575781 (Version 1)
Quarter: 2014Q4

REPORT INFORMATION
  Report Type: Spontaneous
  Country: DE (occurrence: DE)
  Receive Date: 20141111
  Receipt Date: 20141111
  Transmission Date: 20150529
  Serious: Yes (Other)
  Sender: FDA-Public Use
  Company Number: DE-JNJFOC-20141101133

PATIENT
  Sex: Female

DRUGS (2)
  1. REGAINE FRAUEN [Suspect]
     Active Substance: MINOXIDIL
     Indication: PRODUCT USED FOR UNKNOWN INDICATION
     Route: 061
     Dates: start: 20140523
  2. REGAINE FRAUEN [Suspect]
     Active Substance: MINOXIDIL
     Indication: PRODUCT USED FOR UNKNOWN INDICATION
     Dosage: RECOMMENDED TO REDUCE DOSAGE TO 0.5ML IN THE MORNING AND 0.7ML IN THE EVENING.
     Route: 061

REACTIONS (4)
  - Incontinence [Recovered/Resolved]
  - Breast discomfort [Unknown]
  - Vaginal haemorrhage [Recovered/Resolved]
  - Tinnitus [Not Recovered/Not Resolved]

NARRATIVE: CASE EVENT DATE: 20140524
